FAERS Safety Report 26054650 (Version 1)
Quarter: 2025Q4

REPORT INFORMATION
  Report Type: Report from Study
  Country: US (occurrence: US)
  Receive Date: 20251117
  Receipt Date: 20251117
  Transmission Date: 20260117
  Serious: Yes (Other)
  Sender: MYLAN
  Company Number: US-MYLANLABS-2025M1097406

PATIENT
  Age: 69 Year
  Sex: Female
  Weight: 81.65 kg

DRUGS (40)
  1. YUPELRI [Suspect]
     Active Substance: REVEFENACIN
     Indication: Chronic obstructive pulmonary disease
     Dosage: 175 PER 3 MICROGRAM PER MILLILITRE, QD (ONCE DAILY VIA NEBULIZER)
     Dates: start: 20251028, end: 20251112
  2. YUPELRI [Suspect]
     Active Substance: REVEFENACIN
     Dosage: 175 PER 3 MICROGRAM PER MILLILITRE, QD (ONCE DAILY VIA NEBULIZER)
     Route: 055
     Dates: start: 20251028, end: 20251112
  3. YUPELRI [Suspect]
     Active Substance: REVEFENACIN
     Dosage: 175 PER 3 MICROGRAM PER MILLILITRE, QD (ONCE DAILY VIA NEBULIZER)
     Route: 055
     Dates: start: 20251028, end: 20251112
  4. YUPELRI [Suspect]
     Active Substance: REVEFENACIN
     Dosage: 175 PER 3 MICROGRAM PER MILLILITRE, QD (ONCE DAILY VIA NEBULIZER)
     Dates: start: 20251028, end: 20251112
  5. XARELTO [Concomitant]
     Active Substance: RIVAROXABAN
     Dosage: 20 MILLIGRAM, QD (1 TABLET ONCE A DAY WITH FOOD)
  6. XARELTO [Concomitant]
     Active Substance: RIVAROXABAN
     Dosage: 20 MILLIGRAM, QD (1 TABLET ONCE A DAY WITH FOOD)
     Route: 065
  7. XARELTO [Concomitant]
     Active Substance: RIVAROXABAN
     Dosage: 20 MILLIGRAM, QD (1 TABLET ONCE A DAY WITH FOOD)
     Route: 065
  8. XARELTO [Concomitant]
     Active Substance: RIVAROXABAN
     Dosage: 20 MILLIGRAM, QD (1 TABLET ONCE A DAY WITH FOOD)
  9. OMEPRAZOLE [Concomitant]
     Active Substance: OMEPRAZOLE
     Indication: Gastrooesophageal reflux disease
     Dosage: 40 MILLIGRAM, PRN (1 CAPSULE BY MOUTH ONCE A DAY AS NEEDED)
  10. OMEPRAZOLE [Concomitant]
     Active Substance: OMEPRAZOLE
     Dosage: 40 MILLIGRAM, PRN (1 CAPSULE BY MOUTH ONCE A DAY AS NEEDED)
     Route: 048
  11. OMEPRAZOLE [Concomitant]
     Active Substance: OMEPRAZOLE
     Dosage: 40 MILLIGRAM, PRN (1 CAPSULE BY MOUTH ONCE A DAY AS NEEDED)
     Route: 048
  12. OMEPRAZOLE [Concomitant]
     Active Substance: OMEPRAZOLE
     Dosage: 40 MILLIGRAM, PRN (1 CAPSULE BY MOUTH ONCE A DAY AS NEEDED)
  13. CITRUCEL [Concomitant]
     Active Substance: METHYLCELLULOSE (4000 CPS)
     Indication: Constipation
     Dosage: 1000 MILLIGRAM, PRN (2 TABLETS BY MOUTH ONCE A DAY AS NEEDED))
  14. CITRUCEL [Concomitant]
     Active Substance: METHYLCELLULOSE (4000 CPS)
     Dosage: 1000 MILLIGRAM, PRN (2 TABLETS BY MOUTH ONCE A DAY AS NEEDED))
     Route: 048
  15. CITRUCEL [Concomitant]
     Active Substance: METHYLCELLULOSE (4000 CPS)
     Dosage: 1000 MILLIGRAM, PRN (2 TABLETS BY MOUTH ONCE A DAY AS NEEDED))
     Route: 048
  16. CITRUCEL [Concomitant]
     Active Substance: METHYLCELLULOSE (4000 CPS)
     Dosage: 1000 MILLIGRAM, PRN (2 TABLETS BY MOUTH ONCE A DAY AS NEEDED))
  17. ZYRTEC [Concomitant]
     Active Substance: CETIRIZINE HYDROCHLORIDE
     Dosage: 10 MILLIGRAM, QD (1 TABLET BY MOUTH ONCE A DAY)
  18. ZYRTEC [Concomitant]
     Active Substance: CETIRIZINE HYDROCHLORIDE
     Dosage: 10 MILLIGRAM, QD (1 TABLET BY MOUTH ONCE A DAY)
     Route: 048
  19. ZYRTEC [Concomitant]
     Active Substance: CETIRIZINE HYDROCHLORIDE
     Dosage: 10 MILLIGRAM, QD (1 TABLET BY MOUTH ONCE A DAY)
     Route: 048
  20. ZYRTEC [Concomitant]
     Active Substance: CETIRIZINE HYDROCHLORIDE
     Dosage: 10 MILLIGRAM, QD (1 TABLET BY MOUTH ONCE A DAY)
  21. SUDAFED [Concomitant]
     Active Substance: PSEUDOEPHEDRINE HYDROCHLORIDE
     Indication: Nasal congestion
     Dosage: 60 MILLIGRAM, PRN (2 TABLETS EVERY 4 HOURS AS NEEDED (MAXIMUM 8 TABLETS PER DAY))
  22. SUDAFED [Concomitant]
     Active Substance: PSEUDOEPHEDRINE HYDROCHLORIDE
     Dosage: 60 MILLIGRAM, PRN (2 TABLETS EVERY 4 HOURS AS NEEDED (MAXIMUM 8 TABLETS PER DAY))
     Route: 048
  23. SUDAFED [Concomitant]
     Active Substance: PSEUDOEPHEDRINE HYDROCHLORIDE
     Dosage: 60 MILLIGRAM, PRN (2 TABLETS EVERY 4 HOURS AS NEEDED (MAXIMUM 8 TABLETS PER DAY))
     Route: 048
  24. SUDAFED [Concomitant]
     Active Substance: PSEUDOEPHEDRINE HYDROCHLORIDE
     Dosage: 60 MILLIGRAM, PRN (2 TABLETS EVERY 4 HOURS AS NEEDED (MAXIMUM 8 TABLETS PER DAY))
  25. VITAMIN C [Concomitant]
     Active Substance: ASCORBIC ACID
     Dosage: 500 MILLIGRAM, QD (1 TABLET BY MOUTH ONCE A DAY)
  26. VITAMIN C [Concomitant]
     Active Substance: ASCORBIC ACID
     Dosage: 500 MILLIGRAM, QD (1 TABLET BY MOUTH ONCE A DAY)
     Route: 048
  27. VITAMIN C [Concomitant]
     Active Substance: ASCORBIC ACID
     Dosage: 500 MILLIGRAM, QD (1 TABLET BY MOUTH ONCE A DAY)
     Route: 048
  28. VITAMIN C [Concomitant]
     Active Substance: ASCORBIC ACID
     Dosage: 500 MILLIGRAM, QD (1 TABLET BY MOUTH ONCE A DAY)
  29. ADVAIR HFA [Concomitant]
     Active Substance: FLUTICASONE PROPIONATE\SALMETEROL XINAFOATE
     Dosage: UNK, BID (230 TO 21 MICROGRAMS PER ACTUATION, TWICE DAILY)
  30. ADVAIR HFA [Concomitant]
     Active Substance: FLUTICASONE PROPIONATE\SALMETEROL XINAFOATE
     Dosage: UNK, BID (230 TO 21 MICROGRAMS PER ACTUATION, TWICE DAILY)
     Route: 065
  31. ADVAIR HFA [Concomitant]
     Active Substance: FLUTICASONE PROPIONATE\SALMETEROL XINAFOATE
     Dosage: UNK, BID (230 TO 21 MICROGRAMS PER ACTUATION, TWICE DAILY)
     Route: 065
  32. ADVAIR HFA [Concomitant]
     Active Substance: FLUTICASONE PROPIONATE\SALMETEROL XINAFOATE
     Dosage: UNK, BID (230 TO 21 MICROGRAMS PER ACTUATION, TWICE DAILY)
  33. ALBUTEROL SULFATE [Concomitant]
     Active Substance: ALBUTEROL SULFATE
     Dosage: UNK, PRN (AS NEEDED)
  34. ALBUTEROL SULFATE [Concomitant]
     Active Substance: ALBUTEROL SULFATE
     Dosage: UNK, PRN (AS NEEDED)
     Route: 065
  35. ALBUTEROL SULFATE [Concomitant]
     Active Substance: ALBUTEROL SULFATE
     Dosage: UNK, PRN (AS NEEDED)
     Route: 065
  36. ALBUTEROL SULFATE [Concomitant]
     Active Substance: ALBUTEROL SULFATE
     Dosage: UNK, PRN (AS NEEDED)
  37. BENZONATATE [Concomitant]
     Active Substance: BENZONATATE
     Indication: Cough
     Dosage: 100 MILLIGRAM, PRN (1 CAPSULE BY MOUTH THREE TIMES A DAY AS NEEDED)
  38. BENZONATATE [Concomitant]
     Active Substance: BENZONATATE
     Dosage: 100 MILLIGRAM, PRN (1 CAPSULE BY MOUTH THREE TIMES A DAY AS NEEDED)
     Route: 048
  39. BENZONATATE [Concomitant]
     Active Substance: BENZONATATE
     Dosage: 100 MILLIGRAM, PRN (1 CAPSULE BY MOUTH THREE TIMES A DAY AS NEEDED)
     Route: 048
  40. BENZONATATE [Concomitant]
     Active Substance: BENZONATATE
     Dosage: 100 MILLIGRAM, PRN (1 CAPSULE BY MOUTH THREE TIMES A DAY AS NEEDED)

REACTIONS (1)
  - Angina bullosa haemorrhagica [Recovering/Resolving]

NARRATIVE: CASE EVENT DATE: 20251107
